FAERS Safety Report 5714946-5 (Version None)
Quarter: 2008Q2

REPORT INFORMATION
  Report Type: 
  Country: None (occurrence: None)
  Receive Date: 20080423
  Receipt Date: 20080411
  Transmission Date: 20081010
  Serious: Yes (Death, Hospitalization)
  Sender: FDA-Public Use
  Company Number: FR-ROCHE-558542

PATIENT
  Age: 12 Year
  Sex: Male

DRUGS (4)
  1. TAMIFLU [Suspect]
     Route: 048
     Dates: start: 20080118, end: 20080120
  2. ACETAMINOPHEN [Concomitant]
     Dates: start: 20080118
  3. CARBOCYSTEINE [Concomitant]
     Dates: start: 20080118
  4. 1 CONCOMITANT DRUG [Concomitant]
     Dosage: DRUG NAME: RHYNOTROPYL
     Dates: start: 20080118

REACTIONS (1)
  - STATUS EPILEPTICUS [None]
